FAERS Safety Report 9290656 (Version 2)
Quarter: 2013Q2

REPORT INFORMATION
  Report Type: Report from Study
  Country: JP (occurrence: JP)
  Receive Date: 20130515
  Receipt Date: 20130618
  Transmission Date: 20140414
  Serious: No
  Sender: FDA-Public Use
  Company Number: JP-JNJFOC-20130501313

PATIENT
  Age: 76 Year
  Sex: Female
  Weight: 52 kg

DRUGS (13)
  1. GOLIMUMAB [Suspect]
     Indication: RHEUMATOID ARTHRITIS
     Route: 058
     Dates: start: 20120906, end: 20120906
  2. GOLIMUMAB [Suspect]
     Indication: RHEUMATOID ARTHRITIS
     Route: 058
     Dates: start: 20121004, end: 20121004
  3. GOLIMUMAB [Suspect]
     Indication: RHEUMATOID ARTHRITIS
     Route: 058
     Dates: start: 20121101, end: 20121101
  4. GOLIMUMAB [Suspect]
     Indication: RHEUMATOID ARTHRITIS
     Route: 058
     Dates: start: 20121221, end: 20121221
  5. GOLIMUMAB [Suspect]
     Indication: RHEUMATOID ARTHRITIS
     Route: 058
     Dates: start: 20130117, end: 20130117
  6. GOLIMUMAB [Suspect]
     Indication: RHEUMATOID ARTHRITIS
     Route: 058
     Dates: start: 20130316
  7. GOLIMUMAB [Suspect]
     Indication: RHEUMATOID ARTHRITIS
     Route: 058
     Dates: start: 20130216, end: 20130216
  8. METHOTREXATE [Suspect]
     Indication: RHEUMATOID ARTHRITIS
     Route: 065
     Dates: start: 201108, end: 20121201
  9. PREDONINE [Concomitant]
     Indication: RHEUMATOID ARTHRITIS
     Route: 048
  10. CELECOX [Concomitant]
     Indication: RHEUMATOID ARTHRITIS
     Route: 048
  11. FOLIAMIN [Concomitant]
     Indication: PROPHYLAXIS
     Route: 065
  12. SELBEX [Concomitant]
     Indication: PROPHYLAXIS
     Route: 048
  13. SENNARIDE [Concomitant]
     Indication: PROPHYLAXIS
     Route: 048

REACTIONS (1)
  - Cell marker increased [Recovered/Resolved]
